FAERS Safety Report 11584812 (Version 1)
Quarter: 2015Q4

REPORT INFORMATION
  Report Type: Spontaneous
  Country: US (occurrence: US)
  Receive Date: 20151001
  Receipt Date: 20151001
  Transmission Date: 20160304
  Serious: No
  Sender: FDA-Public Use
  Company Number: US-JNJFOC-20150902427

PATIENT
  Sex: Male

DRUGS (2)
  1. CRIZOTINIB [Interacting]
     Active Substance: CRIZOTINIB
     Indication: PRODUCT USED FOR UNKNOWN INDICATION
     Route: 048
  2. KETOCONAZOLE. [Suspect]
     Active Substance: KETOCONAZOLE
     Indication: PRODUCT USED FOR UNKNOWN INDICATION
     Dosage: WITH 12-HOUR INTERVALS FROM DAYS 1 TO 16
     Route: 065

REACTIONS (1)
  - Drug interaction [Unknown]
